FAERS Safety Report 4930162-9 (Version None)
Quarter: 2006Q1

REPORT INFORMATION
  Report Type: 
  Country: None (occurrence: None)
  Receive Date: 20060302
  Receipt Date: 20060222
  Transmission Date: 20060701
  Serious: Yes (Hospitalization)
  Sender: FDA-Public Use
  Company Number: FR-AVENTIS-200610768FR

PATIENT
  Age: 66 Year
  Sex: Male

DRUGS (15)
  1. LOVENOX [Suspect]
     Indication: PROPHYLAXIS
     Route: 058
     Dates: start: 20060113, end: 20060201
  2. LOVENOX [Suspect]
     Indication: HIP ARTHROPLASTY
     Route: 058
     Dates: start: 20060113, end: 20060201
  3. ORBENINE [Concomitant]
     Indication: PYREXIA
  4. GENTAMICIN [Concomitant]
     Indication: PYREXIA
  5. CLAFORAN [Concomitant]
     Indication: PYREXIA
  6. FOSFOCINE [Concomitant]
     Indication: PYREXIA
  7. BRISTOPEN [Concomitant]
     Indication: PYREXIA
  8. OFLOCET [Concomitant]
     Indication: PYREXIA
  9. DAFALGAN [Concomitant]
  10. ZYLORIC [Concomitant]
  11. MORPHINE SULFATE [Concomitant]
  12. RIFAMPICIN [Concomitant]
  13. MYOLASTAN [Concomitant]
  14. INNOHEP [Concomitant]
  15. HEXAQUINE [Concomitant]

REACTIONS (1)
  - THROMBOCYTHAEMIA [None]
